FAERS Safety Report 17432625 (Version 1)
Quarter: 2020Q1

REPORT INFORMATION
  Report Type: Report from Study
  Country: JP (occurrence: JP)
  Receive Date: 20200218
  Receipt Date: 20200218
  Transmission Date: 20200409
  Serious: Yes (Hospitalization, Other)
  Sender: FDA-Public Use
  Company Number: PHJP2017JP010795

PATIENT
  Age: 66 Year
  Sex: Male

DRUGS (7)
  1. JAKAVI TABLETS [Suspect]
     Active Substance: RUXOLITINIB
     Dosage: 5 MG, BID
     Route: 048
     Dates: start: 20160801
  2. EXJADE [Suspect]
     Active Substance: DEFERASIROX
     Dosage: 250 MG, QD
     Route: 048
     Dates: start: 20170912
  3. JAKAVI TABLETS [Suspect]
     Active Substance: RUXOLITINIB
     Indication: PRIMARY MYELOFIBROSIS
     Dosage: 5 MG, QD
     Route: 048
     Dates: start: 20160627, end: 20160731
  4. EXJADE [Suspect]
     Active Substance: DEFERASIROX
     Indication: IRON OVERLOAD
     Dosage: 500 MG, QD
     Route: 048
     Dates: start: 20160314, end: 20170404
  5. RED BLOOD CELLS, CONCENTRATED [Concomitant]
     Active Substance: HUMAN RED BLOOD CELL
     Indication: PRIMARY MYELOFIBROSIS
     Dosage: 2 IU, UNK
     Route: 065
  6. JAKAVI TABLETS [Suspect]
     Active Substance: RUXOLITINIB
     Dosage: 20 MG, QD
     Route: 048
     Dates: start: 20180123, end: 20180604
  7. JAKAVI TABLETS [Suspect]
     Active Substance: RUXOLITINIB
     Dosage: 15 MG, BID
     Route: 048
     Dates: start: 20180605

REACTIONS (11)
  - Blood alkaline phosphatase increased [Unknown]
  - Pulmonary tuberculosis [Recovering/Resolving]
  - Dyspnoea [Unknown]
  - Malaise [Unknown]
  - Blood creatinine increased [Recovered/Resolved]
  - Primary myelofibrosis [Not Recovered/Not Resolved]
  - Anaemia [Unknown]
  - Pyrexia [Unknown]
  - Platelet count decreased [Not Recovered/Not Resolved]
  - Concomitant disease aggravated [Not Recovered/Not Resolved]
  - Herpes zoster [Recovered/Resolved]

NARRATIVE: CASE EVENT DATE: 20170404
